FAERS Safety Report 6644599-3 (Version None)
Quarter: 2010Q1

REPORT INFORMATION
  Report Type: 
  Country: None (occurrence: None)
  Receive Date: 20100318
  Receipt Date: 20100318
  Transmission Date: 20100710
  Serious: Yes (Hospitalization)
  Sender: FDA-Public Use
  Company Number: None

PATIENT
  Sex: Male
  Weight: 89.1 kg

DRUGS (3)
  1. CYTARABINE [Suspect]
     Dosage: 12330 MG
     Dates: end: 20100301
  2. MITOXANTRONE HYDROCHLORIDE [Suspect]
     Dosage: 41 MG
     Dates: end: 20100302
  3. TRETINOIN [Suspect]
     Dosage: 700 MG
     Dates: end: 20100312

REACTIONS (4)
  - BACTERIAL TEST POSITIVE [None]
  - INFECTION [None]
  - MORAXELLA INFECTION [None]
  - NEUTROPHIL COUNT ABNORMAL [None]
